FAERS Safety Report 9278374 (Version 1)
Quarter: 2013Q2

REPORT INFORMATION
  Report Type: Spontaneous
  Country: US (occurrence: US)
  Receive Date: 20130508
  Receipt Date: 20130508
  Transmission Date: 20140414
  Serious: Yes (Other)
  Sender: FDA-Public Use
  Company Number: US-TEVA-402633USA

PATIENT
  Sex: Female

DRUGS (1)
  1. PROGLYCEM SUSPENSION [Suspect]
     Indication: HYPOGLYCAEMIA

REACTIONS (2)
  - Loss of consciousness [Unknown]
  - Blood glucose decreased [Unknown]
